FAERS Safety Report 14800329 (Version 4)
Quarter: 2018Q3

REPORT INFORMATION
  Report Type: Report from Study
  Country: SE (occurrence: SE)
  Receive Date: 20180424
  Receipt Date: 20180926
  Transmission Date: 20181010
  Serious: Yes (Life-Threatening, Hospitalization, Other)
  Sender: FDA-Public Use
  Company Number: SE-TEVA-2018-SE-884736

PATIENT
  Age: 51 Year
  Sex: Female

DRUGS (5)
  1. NIFEDIPINE. [Interacting]
     Active Substance: NIFEDIPINE
     Indication: SUICIDE ATTEMPT
     Route: 048
  2. PARACETAMOL [Interacting]
     Active Substance: ACETAMINOPHEN
     Indication: SUICIDE ATTEMPT
     Dosage: LOW TO MODERATE DOSES
     Route: 048
  3. ZOPICLONE [Interacting]
     Active Substance: ZOPICLONE
     Indication: SUICIDE ATTEMPT
     Dosage: LOW TO MODERATE DOSES
     Route: 048
  4. PROPRANOLOL [Interacting]
     Active Substance: PROPRANOLOL HYDROCHLORIDE
     Indication: SUICIDE ATTEMPT
     Dosage: APPROXIMATELY 400 MG
     Route: 048
  5. CITALOPRAM [Suspect]
     Active Substance: CITALOPRAM HYDROBROMIDE
     Indication: SUICIDE ATTEMPT
     Dosage: LOW TO MODERATE DOSES
     Route: 048

REACTIONS (13)
  - Intentional overdose [Recovered/Resolved]
  - Myocardial depression [Recovered/Resolved]
  - Anuria [Recovered/Resolved]
  - Suicide attempt [Recovered/Resolved]
  - Heart rate decreased [Recovered/Resolved]
  - Alcohol interaction [Recovered/Resolved]
  - Toxicity to various agents [Recovered/Resolved]
  - Blood pressure decreased [Recovered/Resolved]
  - Nasopharyngitis [Recovered/Resolved]
  - Seizure [Recovered/Resolved]
  - Blood glucose decreased [Recovered/Resolved]
  - Hypertension [Unknown]
  - Peripheral vascular disorder [Recovered/Resolved]
